FAERS Safety Report 4356019-2 (Version None)
Quarter: 2004Q2

REPORT INFORMATION
  Report Type: 
  Country: None (occurrence: None)
  Receive Date: 20040505
  Receipt Date: 20040425
  Transmission Date: 20050107
  Serious: Yes (Hospitalization)
  Sender: FDA-Public Use
  Company Number: 2004210417US

PATIENT
  Sex: 0

DRUGS (1)
  1. DETROL LA [Suspect]
     Dosage: ORAL
     Route: 048
     Dates: start: 20040401

REACTIONS (1)
  - PNEUMONIA [None]
